FAERS Safety Report 7752480-1 (Version None)
Quarter: 2011Q3

REPORT INFORMATION
  Report Type: 
  Country: None (occurrence: None)
  Receive Date: 20110915
  Receipt Date: 20110912
  Transmission Date: 20111222
  Serious: Yes (Death)
  Sender: FDA-Public Use
  Company Number: PHHY2011MX81345

PATIENT
  Sex: Female

DRUGS (1)
  1. CARBAMAZEPINE [Suspect]
     Dosage: UNK UKN, UNK
     Route: 064

REACTIONS (9)
  - DYSMORPHISM [None]
  - MENINGOMYELOCELE [None]
  - NEUTROPENIA [None]
  - KYPHOSIS [None]
  - NAIL GROWTH ABNORMAL [None]
  - FOETAL ANTICONVULSANT SYNDROME [None]
  - MULTI-ORGAN FAILURE [None]
  - PULMONARY HYPERTENSION [None]
  - MATERNAL EXPOSURE DURING PREGNANCY [None]
